FAERS Safety Report 10203390 (Version 1)
Quarter: 2014Q2

REPORT INFORMATION
  Report Type: Spontaneous
  Country: US (occurrence: None)
  Receive Date: 20140523
  Receipt Date: 20140523
  Transmission Date: 20141212
  Serious: Yes (Death)
  Sender: FDA-Public Use
  Company Number: 2344617

PATIENT
  Age: 70 Year
  Sex: Female

DRUGS (2)
  1. FLUDARABINE PHOSPHATE [Suspect]
     Indication: CHRONIC LYMPHOCYTIC LEUKAEMIA
     Dosage: NOT REPORTED, UNKNOWN
  2. RITUXIMAB [Suspect]
     Indication: CHRONIC LYMPHOCYTIC LEUKAEMIA
     Dosage: NOT REPORTED, UNKNOWN

REACTIONS (4)
  - Multi-organ failure [None]
  - Adenoviral hepatitis [None]
  - Urinary tract infection [None]
  - Pneumocystis jirovecii pneumonia [None]
